FAERS Safety Report 14324313 (Version 2)
Quarter: 2018Q1

REPORT INFORMATION
  Report Type: Spontaneous
  Country: GB (occurrence: GB)
  Receive Date: 20171226
  Receipt Date: 20180106
  Transmission Date: 20180509
  Serious: Yes (Hospitalization, Other)
  Sender: FDA-Public Use
  Company Number: GB-AUROBINDO-AUR-APL-2017-45635

PATIENT
  Age: 52 Year
  Sex: Female

DRUGS (1)
  1. CEFALEXIN [Suspect]
     Active Substance: CEPHALEXIN
     Indication: URINARY TRACT INFECTION

REACTIONS (18)
  - Vulvar erosion [Unknown]
  - Sepsis [Unknown]
  - Rash erythematous [Unknown]
  - Condition aggravated [Recovered/Resolved]
  - Toxic epidermal necrolysis [Unknown]
  - Vanishing bile duct syndrome [Recovered/Resolved]
  - Bile duct obstruction [Recovered/Resolved]
  - Blister [Unknown]
  - Stomatitis [Unknown]
  - Conjunctival hyperaemia [Unknown]
  - Liver function test increased [Recovered/Resolved]
  - Headache [Unknown]
  - Hepatic encephalopathy [Recovered/Resolved]
  - Mucosal inflammation [Unknown]
  - Biliary dilatation [Unknown]
  - Acute kidney injury [Recovered/Resolved]
  - Pyrexia [Unknown]
  - Conjunctival oedema [Unknown]
